FAERS Safety Report 10583775 (Version 1)
Quarter: 2014Q4

REPORT INFORMATION
  Report Type: Spontaneous
  Country: IT (occurrence: None)
  Receive Date: 20141112
  Receipt Date: 20141112
  Transmission Date: 20150529
  Serious: Yes (Hospitalization)
  Sender: FDA-Public Use
  Company Number: 2014STPI000622

PATIENT
  Age: 80 Year
  Sex: Female

DRUGS (14)
  1. AZILSARTAN(AZILSARTAN) [Concomitant]
  2. CILOSTAZOL JG (CILOSTAZOL) [Concomitant]
  3. EPOETIN BETA [Concomitant]
     Active Substance: ERYTHROPOIETIN
  4. SENNOSIDE(SENNOSIDE A+B) [Concomitant]
  5. DROXIDOPA [Concomitant]
     Active Substance: DROXIDOPA
  6. CALCITROL(CALCIUM CARBONATE, ERGOCALCIFEROL, RETINOL) [Concomitant]
  7. ZOPICLONE [Concomitant]
     Active Substance: ZOPICLONE
  8. SODIUM BICARBONATE. [Concomitant]
     Active Substance: SODIUM BICARBONATE
  9. CLINIDIPINE [Concomitant]
     Active Substance: CILNIDIPINE
  10. SODIUM PICOSULFATE) [Concomitant]
  11. CARNITOR [Suspect]
     Active Substance: LEVOCARNITINE
     Indication: CARNITINE DEFICIENCY
     Dosage: 500 MG, TIW, HEMODIALYSIS
     Dates: start: 20140301, end: 20141011
  12. AMEZINIUM [Concomitant]
  13. PARNAPARIN SODIUM [Concomitant]
  14. ROSUVASTATIN [Concomitant]
     Active Substance: ROSUVASTATIN

REACTIONS (4)
  - Cardiac failure [None]
  - Injury [None]
  - Respiratory failure [None]
  - Head injury [None]

NARRATIVE: CASE EVENT DATE: 20140730
